FAERS Safety Report 11293282 (Version 3)
Quarter: 2015Q3

REPORT INFORMATION
  Report Type: Other
  Country: TR (occurrence: TR)
  Receive Date: 20150722
  Receipt Date: 20150811
  Transmission Date: 20151125
  Serious: Yes (Congenital Anomaly)
  Sender: FDA-Public Use
  Company Number: TR-EMD SERONO-8034636

PATIENT
  Sex: Male

DRUGS (1)
  1. FOLLITROPIN ALFA [Suspect]
     Active Substance: FOLLITROPIN
     Indication: IN VITRO FERTILISATION
     Route: 064

REACTIONS (2)
  - Foetal exposure during pregnancy [Recovered/Resolved]
  - Duane^s syndrome [Unknown]
